FAERS Safety Report 24792718 (Version 1)
Quarter: 2024Q4

REPORT INFORMATION
  Report Type: Spontaneous
  Country: FR (occurrence: FR)
  Receive Date: 20241231
  Receipt Date: 20241231
  Transmission Date: 20250115
  Serious: Yes (Death, Hospitalization, Other)
  Sender: SANDOZ
  Company Number: FR-OPELLA-2023OHG003318

PATIENT
  Age: 9 Year
  Sex: Female
  Weight: 30 kg

DRUGS (1)
  1. ACETAMINOPHEN [Suspect]
     Active Substance: ACETAMINOPHEN
     Indication: Toothache
     Dosage: TABLET GIVEN 4 TIMES,16.7 MG/KG EVERY FOUR HOURS FOR TWELVE HOURS, GIVING A CUMULATIVE DOSE OF 66.6
     Route: 048

REACTIONS (5)
  - Intracranial pressure increased [Fatal]
  - Hepatorenal syndrome [Fatal]
  - Drug-induced liver injury [Fatal]
  - Hepatic failure [Fatal]
  - Toxicity to various agents [Fatal]
